FAERS Safety Report 9577861 (Version 1)
Quarter: 2013Q4

REPORT INFORMATION
  Report Type: Spontaneous
  Country: US (occurrence: US)
  Receive Date: 20131001
  Receipt Date: 20131001
  Transmission Date: 20140711
  Serious: No
  Sender: FDA-Public Use
  Company Number: US-AMGEN-USASP2013010037

PATIENT
  Age: 72 Year
  Sex: Female

DRUGS (2)
  1. ENBREL [Suspect]
     Indication: RHEUMATOID ARTHRITIS
     Dosage: 50 MG, QWK
     Dates: start: 200102
  2. METHOTREXATE [Concomitant]
     Dosage: UNK MG, QWK
     Route: 048
     Dates: start: 2012

REACTIONS (2)
  - White blood cell count decreased [Recovered/Resolved]
  - Headache [Recovered/Resolved]
